FAERS Safety Report 10768592 (Version 1)
Quarter: 2015Q1

REPORT INFORMATION
  Report Type: Spontaneous
  Country: US (occurrence: None)
  Receive Date: 20150205
  Receipt Date: 20150205
  Transmission Date: 20150721
  Serious: Yes (Death, Hospitalization)
  Sender: FDA-Public Use
  Company Number: None

PATIENT
  Age: 66 Year
  Sex: Female
  Weight: 63.6 kg

DRUGS (1)
  1. BEVACIZUMAB (RHUMAB VEGF) [Suspect]
     Active Substance: BEVACIZUMAB
     Dosage: 12/13/2013 LAST DOSE OF AVASTIN PRIOR TO SAE
     Dates: end: 20131213

REACTIONS (12)
  - Embolic stroke [None]
  - Pneumonia [None]
  - Sinus tachycardia [None]
  - Atrial fibrillation [None]
  - Sepsis [None]
  - Respiratory distress [None]
  - Confusional state [None]
  - Deep vein thrombosis [None]
  - Blood pressure decreased [None]
  - Coronary artery embolism [None]
  - Anaemia [None]
  - Cerebral infarction [None]

NARRATIVE: CASE EVENT DATE: 20131229
